FAERS Safety Report 21232915 (Version 1)
Quarter: 2022Q3

REPORT INFORMATION
  Report Type: Spontaneous
  Country: ES (occurrence: ES)
  Receive Date: 20220819
  Receipt Date: 20220819
  Transmission Date: 20221026
  Serious: Yes (Hospitalization)
  Sender: FDA-Public Use
  Company Number: None

PATIENT
  Age: 86 Year
  Sex: Male

DRUGS (11)
  1. SPIRONOLACTONE [Suspect]
     Active Substance: SPIRONOLACTONE
     Indication: Cardiac failure
     Dosage: 25 MG, DAILY (EVERY 24H)
     Route: 048
     Dates: start: 20210619, end: 20210627
  2. ANORO ELLIPTA [Concomitant]
     Active Substance: UMECLIDINIUM BROMIDE\VILANTEROL TRIFENATATE
     Indication: Bronchitis chronic
     Dosage: 1 DF, DAILY (1.0 PUFF EVERY/24 H)
     Dates: start: 20220428
  3. RISPERIDONA STADA [Concomitant]
     Indication: Dementia Alzheimer^s type
     Dosage: 1 MG
     Route: 048
     Dates: start: 20210507
  4. OMEPRAZOL CINFA [Concomitant]
     Indication: Back pain
     Dosage: 20 MG
     Route: 048
     Dates: start: 20140612
  5. FLUOXETINE HYDROCHLORIDE [Concomitant]
     Active Substance: FLUOXETINE HYDROCHLORIDE
     Indication: Insomnia
     Dosage: 100 MG, DAILY (100.0 MG EVERY/24 H)
     Route: 048
     Dates: start: 20170525
  6. DILUTOL [TORASEMIDE] [Concomitant]
     Indication: Cardiac failure
     Dosage: 5 MG
     Route: 048
     Dates: start: 20220620
  7. FERROUS SULFATE [Concomitant]
     Active Substance: FERROUS SULFATE
     Indication: Iron deficiency anaemia
     Dosage: 105 MG, DAILY (EVERY 24H AM)
     Route: 048
     Dates: start: 20220507
  8. PARACETAMOL KERN PHARMA [Concomitant]
     Indication: Back pain
     Dosage: 1 G, 2X/DAY (EVERY 12H)
     Route: 048
     Dates: start: 20140611
  9. NUTRASONA [Concomitant]
     Indication: Oedema
     Dosage: 2 DF, DAILY (2 APLIC EVERY 24H)
     Route: 061
     Dates: start: 20090626
  10. ASPIRIN [Concomitant]
     Active Substance: ASPIRIN
     Indication: Hypertension
     Dosage: 100 MG
     Route: 048
     Dates: start: 20120327
  11. MEMANTINE HYDROCHLORIDE [Concomitant]
     Active Substance: MEMANTINE HYDROCHLORIDE
     Indication: Dementia Alzheimer^s type
     Dosage: 20 MG
     Route: 048
     Dates: start: 20190309

REACTIONS (1)
  - Orthostatic hypotension [Recovered/Resolved]

NARRATIVE: CASE EVENT DATE: 20210627
